FAERS Safety Report 9351397 (Version 1)
Quarter: 2013Q2

REPORT INFORMATION
  Report Type: Spontaneous
  Country: US (occurrence: US)
  Receive Date: 20130617
  Receipt Date: 20130617
  Transmission Date: 20140414
  Serious: No
  Sender: FDA-Public Use
  Company Number: US-UPSHER-SMITH LABORATORIES, INC.-13001797

PATIENT
  Age: 59 Year
  Sex: Female

DRUGS (1)
  1. DIVIGEL [Suspect]
     Indication: HOT FLUSH
     Dosage: 0.5 MG, QD
     Route: 061
     Dates: start: 2010

REACTIONS (1)
  - Application site dryness [Not Recovered/Not Resolved]
